FAERS Safety Report 18107940 (Version 4)
Quarter: 2020Q4

REPORT INFORMATION
  Report Type: Other
  Country: US (occurrence: US)
  Receive Date: 20200803
  Receipt Date: 20201027
  Transmission Date: 20210113
  Serious: No
  Sender: FDA-Public Use
  Company Number: US-AMAG PHARMACEUTICALS, INC.-AMAG202002586

PATIENT
  Age: 29 Year
  Sex: Female
  Weight: 64.92 kg

DRUGS (1)
  1. MAKENA [Suspect]
     Active Substance: HYDROXYPROGESTERONE CAPROATE
     Indication: PREMATURE DELIVERY
     Route: 058
     Dates: start: 20200727

REACTIONS (5)
  - Injection site rash [Not Recovered/Not Resolved]
  - Injection site irritation [Not Recovered/Not Resolved]
  - Tenderness [Recovered/Resolved]
  - Dizziness [Recovered/Resolved]
  - Injection site pruritus [Not Recovered/Not Resolved]

NARRATIVE: CASE EVENT DATE: 20200727
